FAERS Safety Report 7562046-4 (Version None)
Quarter: 2011Q2

REPORT INFORMATION
  Report Type: 
  Country: None (occurrence: None)
  Receive Date: 20110622
  Receipt Date: 20090407
  Transmission Date: 20111010
  Serious: Yes (Hospitalization)
  Sender: FDA-Public Use
  Company Number: PHHY2009DE68669

PATIENT
  Sex: Female
  Weight: 63 kg

DRUGS (6)
  1. DURAGESIC-100 [Concomitant]
     Dosage: 12.5 MG, Q72H
  2. SANDOSTATIN LAR [Suspect]
     Indication: PANCREATIC NEUROENDOCRINE TUMOUR
     Dosage: 20 MG, UNK
     Route: 030
     Dates: start: 20090407
  3. SANDOSTATIN LAR [Suspect]
     Dosage: 30 MG, UNK
     Route: 030
     Dates: start: 20090407
  4. SANDOSTATIN LAR [Suspect]
     Dosage: 30 MG, BID
     Route: 058
     Dates: start: 20090407
  5. DIOVAN HCT [Concomitant]
  6. SANDOSTATIN LAR [Suspect]
     Dosage: 30 MG, TID
     Route: 058
     Dates: start: 20090407

REACTIONS (5)
  - FLUSHING [None]
  - DIARRHOEA [None]
  - PAIN [None]
  - ABDOMINAL PAIN [None]
  - STAPHYLOCOCCAL INFECTION [None]
